FAERS Safety Report 24273936 (Version 2)
Quarter: 2024Q3

REPORT INFORMATION
  Report Type: Spontaneous
  Country: CA (occurrence: CA)
  Receive Date: 20240902
  Receipt Date: 20240906
  Transmission Date: 20241017
  Serious: Yes (Hospitalization, Other)
  Sender: MERCK
  Company Number: CA-009507513-2408CAN009474

PATIENT
  Age: 57 Year
  Sex: Male
  Weight: 90 kg

DRUGS (15)
  1. JANUMET [Suspect]
     Active Substance: METFORMIN HYDROCHLORIDE\SITAGLIPTIN PHOSPHATE
     Dosage: DOSE: 1 DOSAGE FORM, FREQUENCY: 2 EVERY 1 DAYS
     Route: 048
  2. ATIVAN [Concomitant]
     Active Substance: LORAZEPAM
     Route: 048
  3. BASAGLAR [Concomitant]
     Active Substance: INSULIN GLARGINE
     Dosage: FORMULATION: SUBCUTANEOUS SOLUTION
     Route: 058
  4. PERINDOPRIL ARGININE [Concomitant]
     Active Substance: PERINDOPRIL ARGININE
     Route: 048
  5. CYMBALTA [Concomitant]
     Active Substance: DULOXETINE HYDROCHLORIDE
     Route: 048
  6. DESYREL [Concomitant]
     Active Substance: TRAZODONE HYDROCHLORIDE
     Route: 048
  7. DEXILANT [Concomitant]
     Active Substance: DEXLANSOPRAZOLE
     Route: 048
  8. HYDROCHLOROTHIAZIDE [Concomitant]
     Active Substance: HYDROCHLOROTHIAZIDE
     Dosage: UNK
     Route: 048
  9. LANTUS [Concomitant]
     Active Substance: INSULIN GLARGINE
     Dosage: FORMULATION: SUBCUTANEOUS SOLUTION
     Route: 058
  10. LIPITOR [Concomitant]
     Active Substance: ATORVASTATIN CALCIUM
     Route: 048
  11. METOPROLOL [Concomitant]
     Active Substance: METOPROLOL
     Route: 065
  12. NORVASC [Concomitant]
     Active Substance: AMLODIPINE BESYLATE
     Route: 048
  13. OXYCODONE HYDROCHLORIDE [Concomitant]
     Active Substance: OXYCODONE HYDROCHLORIDE
     Route: 048
  14. REMICADE [Concomitant]
     Active Substance: INFLIXIMAB
     Route: 042
  15. SENOKOT [Concomitant]
     Active Substance: SENNOSIDES
     Route: 048

REACTIONS (1)
  - Pancreatitis relapsing [Recovered/Resolved]
